FAERS Safety Report 15254797 (Version 2)
Quarter: 2018Q3

REPORT INFORMATION
  Report Type: Spontaneous
  Country: JP (occurrence: JP)
  Receive Date: 20180808
  Receipt Date: 20180914
  Transmission Date: 20181010
  Serious: Yes (Hospitalization)
  Sender: FDA-Public Use
  Company Number: JP-BAUSCH-BL-2018-021716

PATIENT
  Age: 60 Year
  Sex: Male

DRUGS (2)
  1. LUMICEF [Suspect]
     Active Substance: BRODALUMAB
     Indication: PSORIATIC ARTHROPATHY
     Dosage: INJECTION SYRINGE
     Route: 058
     Dates: start: 20180327, end: 2018
  2. LUMICEF [Suspect]
     Active Substance: BRODALUMAB
     Dosage: INJECTION SYRINGE
     Route: 058
     Dates: start: 20180705

REACTIONS (1)
  - Pneumonia [Recovered/Resolved]

NARRATIVE: CASE EVENT DATE: 20180618
